FAERS Safety Report 14240864 (Version 1)
Quarter: 2017Q4

REPORT INFORMATION
  Report Type: Spontaneous
  Country: JP (occurrence: JP)
  Receive Date: 20171130
  Receipt Date: 20171130
  Transmission Date: 20180321
  Serious: Yes (Death, Other)
  Sender: FDA-Public Use
  Company Number: JP-NAPPMUNDI-GBR-2017-0051104

PATIENT
  Age: 73 Year
  Sex: Male

DRUGS (1)
  1. OXYCONTIN [Suspect]
     Active Substance: OXYCODONE HYDROCHLORIDE
     Indication: CANCER PAIN
     Dosage: 10 MG, DAILY
     Route: 048
     Dates: start: 201706, end: 201707

REACTIONS (3)
  - Malignant neoplasm progression [Fatal]
  - Delirium [Unknown]
  - Constipation [Unknown]

NARRATIVE: CASE EVENT DATE: 201707
